FAERS Safety Report 17858099 (Version 1)
Quarter: 2020Q2

REPORT INFORMATION
  Report Type: Report from Study
  Country: SI (occurrence: SI)
  Receive Date: 20200604
  Receipt Date: 20200604
  Transmission Date: 20200714
  Serious: Yes (Hospitalization)
  Sender: FDA-Public Use
  Company Number: SI-TAKEDA-2020TUS024558

PATIENT
  Age: 45 Year
  Sex: Male

DRUGS (5)
  1. HELEX [Concomitant]
     Active Substance: ALPRAZOLAM
     Dosage: UNK
  2. AMPRIL [Concomitant]
     Active Substance: RAMIPRIL
     Dosage: UNK
  3. VIROLEX                            /00587301/ [Concomitant]
     Dosage: UNK
  4. VEDOLIZUMAB [Suspect]
     Active Substance: VEDOLIZUMAB
     Indication: CROHN^S DISEASE
     Dosage: 300 MILLIGRAM
     Route: 042
     Dates: start: 20190902
  5. MIRZATEN [Concomitant]
     Active Substance: MIRTAZAPINE
     Dosage: UNK

REACTIONS (3)
  - Myelitis [Unknown]
  - Brown-Sequard syndrome [Unknown]
  - Visual impairment [Unknown]
